FAERS Safety Report 5289403-3 (Version None)
Quarter: 2007Q2

REPORT INFORMATION
  Report Type: 
  Country: None (occurrence: None)
  Receive Date: 20070406
  Receipt Date: 20070328
  Transmission Date: 20071010
  Serious: Yes (Other)
  Sender: FDA-Public Use
  Company Number: PHBS2007BR05435

PATIENT
  Age: 51 Year
  Sex: Female
  Weight: 107 kg

DRUGS (2)
  1. DIOVAN AMLO [Suspect]
     Dosage: 160/5MG
  2. VITAMINS [Concomitant]

REACTIONS (1)
  - ABDOMINAL OPERATION [None]
